FAERS Safety Report 5273898-5 (Version None)
Quarter: 2007Q1

REPORT INFORMATION
  Report Type: 
  Country: None (occurrence: None)
  Receive Date: 20070323
  Receipt Date: 20070316
  Transmission Date: 20070707
  Serious: Yes (Other)
  Sender: FDA-Public Use
  Company Number: PHEH2006US13836

PATIENT
  Age: 78 Year
  Sex: Male
  Weight: 56.689 kg

DRUGS (10)
  1. ZOMETA [Suspect]
     Indication: MULTIPLE MYELOMA
     Dosage: 2 MG EVERY MONTH
     Route: 042
     Dates: start: 20030226, end: 20061012
  2. PROCRIT [Concomitant]
  3. MELPHALAN [Concomitant]
     Indication: MULTIPLE MYELOMA
     Dosage: 12 MG X 4 DAYS
     Dates: start: 20030226, end: 20040617
  4. PREDNISONE [Concomitant]
     Indication: MULTIPLE MYELOMA
     Dosage: 60 MG X 7 DAYS X 16 CYCLES
     Dates: start: 20030226, end: 20040617
  5. FOSAMAX [Concomitant]
  6. KLOR-CON [Concomitant]
  7. COUMADIN [Concomitant]
  8. PERCOCET [Concomitant]
  9. ASPIRIN [Concomitant]
  10. ZOCOR [Concomitant]

REACTIONS (1)
  - OSTEONECROSIS [None]
